FAERS Safety Report 4307972-4 (Version None)
Quarter: 2004Q1

REPORT INFORMATION
  Report Type: 
  Country: None (occurrence: None)
  Receive Date: 20040301
  Receipt Date: 20030212
  Transmission Date: 20041129
  Serious: No
  Sender: FDA-Public Use
  Company Number: US-BRISTOL-MYERS SQUIBB COMPANY-12185559

PATIENT
  Age: 69 Year
  Sex: Male

DRUGS (2)
  1. GLUCOPHAGE [Suspect]
     Indication: DIABETES MELLITUS NON-INSULIN-DEPENDENT
     Dosage: DURATION OF THERAPY:  SINCE ^LAST SUMMER^
  2. ZOCOR [Concomitant]

REACTIONS (1)
  - SKIN ODOUR ABNORMAL [None]
